FAERS Safety Report 4855020-X (Version None)
Quarter: 2005Q4

REPORT INFORMATION
  Report Type: 
  Country: None (occurrence: None)
  Receive Date: 20051214
  Receipt Date: 20051129
  Transmission Date: 20060501
  Serious: Yes (Hospitalization)
  Sender: FDA-Public Use
  Company Number: 2005EU002701

PATIENT
  Age: 47 Year
  Sex: Male

DRUGS (9)
  1. FK506(TACROLIMUS CAPSULES)(TACROLIMUS) CAPSULE [Suspect]
     Indication: LIVER TRANSPLANT
     Dosage: 0.5 MG, UID/QD, ORAL
     Route: 048
     Dates: start: 20041208
  2. MYCOPHENOLATE MOFETIL (MYCOPHENOLATE MOFETIL) [Suspect]
     Indication: LIVER TRANSPLANT
     Dosage: 1000 MG, UID/QD, IV NOS
     Route: 042
     Dates: start: 20041203, end: 20041208
  3. DACLIZUMAB (DACLIZUMAB) [Suspect]
     Indication: LIVER TRANSPLANT
     Dosage: 160 MG, UID/QD, IV NOS
     Route: 042
     Dates: start: 20041204, end: 20041210
  4. METHYLPREDNISOLONE [Suspect]
     Indication: LIVER TRANSPLANT
     Dosage: 80 MG, UID/QD,
     Dates: start: 20041203, end: 20041208
  5. PREDNISONE [Suspect]
     Indication: LIVER TRANSPLANT
     Dosage: 5 MG, UID/QD,
     Dates: start: 20041209
  6. ACYCLOVIR [Concomitant]
  7. SUCRALFATE [Concomitant]
  8. NADOLOL [Concomitant]
  9. MYCOPHENOLATE MOFETIL (MYCOPHENOLATE MOFETIL) [Suspect]
     Dosage: 1000 MG, BID, ORAL
     Route: 048
     Dates: start: 20041209

REACTIONS (1)
  - VASCULAR PSEUDOANEURYSM [None]
